FAERS Safety Report 7509911-1 (Version None)
Quarter: 2011Q2

REPORT INFORMATION
  Report Type: 
  Country: None (occurrence: None)
  Receive Date: 20110519
  Receipt Date: 20110505
  Transmission Date: 20111010
  Serious: Yes (Hospitalization, Other)
  Sender: FDA-Public Use
  Company Number: 2011MA005457

PATIENT
  Age: 23 Year
  Sex: Female

DRUGS (1)
  1. SULFATRIM [Suspect]
     Indication: PNEUMOCYSTIS JIROVECI PNEUMONIA
     Dates: start: 20080308

REACTIONS (4)
  - MENINGITIS ASEPTIC [None]
  - ANAPHYLACTIC REACTION [None]
  - HISTIOCYTOSIS HAEMATOPHAGIC [None]
  - HEPATIC FUNCTION ABNORMAL [None]
